FAERS Safety Report 6834041-1 (Version None)
Quarter: 2010Q3

REPORT INFORMATION
  Report Type: 
  Country: None (occurrence: None)
  Receive Date: 20100712
  Receipt Date: 20070409
  Transmission Date: 20110219
  Serious: No
  Sender: FDA-Public Use
  Company Number: US-PFIZER INC-2007028718

PATIENT
  Sex: Female
  Weight: 91.17 kg

DRUGS (10)
  1. CHANTIX [Suspect]
     Indication: SMOKING CESSATION THERAPY
     Dates: start: 20070402
  2. REGLAN [Concomitant]
  3. PRILOSEC [Concomitant]
  4. CYMBALTA [Concomitant]
  5. ACTOS [Concomitant]
  6. GLIPIZIDE [Concomitant]
  7. SITAGLIPTIN [Concomitant]
  8. DARIFENACIN [Concomitant]
  9. ATENOLOL [Concomitant]
  10. VYTORIN [Concomitant]

REACTIONS (3)
  - ABDOMINAL PAIN UPPER [None]
  - HEADACHE [None]
  - NAUSEA [None]
